FAERS Safety Report 7531682-3 (Version None)
Quarter: 2011Q2

REPORT INFORMATION
  Report Type: 
  Country: None (occurrence: None)
  Receive Date: 20110607
  Receipt Date: 20110607
  Transmission Date: 20111010
  Serious: Yes (Hospitalization)
  Sender: FDA-Public Use
  Company Number: None

PATIENT
  Sex: Female
  Weight: 60.4 kg

DRUGS (1)
  1. TEMOZOLOMIDE [Suspect]
     Dosage: 1875 MG
     Dates: end: 20110526

REACTIONS (1)
  - APHASIA [None]
